FAERS Safety Report 7994991-X (Version None)
Quarter: 2011Q4

REPORT INFORMATION
  Report Type: 
  Country: None (occurrence: None)
  Receive Date: 20111217
  Receipt Date: 20111217
  Transmission Date: 20120403
  Serious: No
  Sender: FDA-Public Use
  Company Number: None

PATIENT

DRUGS (2)
  1. LORATADINE [Suspect]
     Dosage: TABLET ORAL 10 MG
     Route: 048
  2. CALCIUM CARBONATE W/VITAMIN D CALCIUM WITH VITAMIN D 600MG/400IU [Suspect]
     Dosage: TABLET ORAL 600MG/400IU
     Route: 048

REACTIONS (3)
  - INTERCEPTED DRUG ADMINISTRATION ERROR [None]
  - MEDICATION ERROR [None]
  - DRUG DISPENSING ERROR [None]
